FAERS Safety Report 15099483 (Version 1)
Quarter: 2018Q3

REPORT INFORMATION
  Report Type: Report from Study
  Country: DE (occurrence: DE)
  Receive Date: 20180702
  Receipt Date: 20180702
  Transmission Date: 20181010
  Serious: Yes (Death, Hospitalization)
  Sender: FDA-Public Use
  Company Number: PHHY2017DE105975

PATIENT
  Age: 79 Year
  Sex: Male
  Weight: 78 kg

DRUGS (6)
  1. CODEINPHOSPHAT [Concomitant]
     Indication: PRODUCT USED FOR UNKNOWN INDICATION
     Dosage: 20 DROPS
     Route: 065
     Dates: start: 20170213
  2. DULCOLAX NOS [Concomitant]
     Active Substance: BISACODYL OR DOCUSATE SODIUM
     Indication: PRODUCT USED FOR UNKNOWN INDICATION
     Dosage: 1 SUPP
     Route: 065
     Dates: start: 20170213
  3. VIDAZA [Concomitant]
     Active Substance: AZACITIDINE
     Indication: ACUTE MYELOID LEUKAEMIA
     Dosage: 143 MG,/DAY CYCLICALLY/EVERY 4 WEEKS
     Route: 058
     Dates: start: 20160815
  4. EXJADE [Suspect]
     Active Substance: DEFERASIROX
     Dosage: 360 MG,9.1 MG/KG BODY?WEIGHT/DAY=2 TABLETS A
     Route: 065
     Dates: start: 20161205, end: 20170327
  5. CIPROFLOXACIN. [Concomitant]
     Active Substance: CIPROFLOXACIN
     Indication: PRODUCT USED FOR UNKNOWN INDICATION
     Dosage: 500 MG,(1000MG/DAY 1?0?1)
     Route: 065
     Dates: start: 20170213
  6. EXJADE [Suspect]
     Active Substance: DEFERASIROX
     Indication: MYELODYSPLASTIC SYNDROME
     Dosage: 360 MG,(4.6MG/KG BODY WEIGHT/DAY=TABLET A360 MG)
     Route: 065
     Dates: start: 20161027, end: 20161204

REACTIONS (8)
  - Nasopharyngitis [Recovered/Resolved]
  - Dyspnoea exertional [Fatal]
  - Diarrhoea [Recovered/Resolved]
  - Chills [Recovered/Resolved]
  - Myelodysplastic syndrome transformation [Fatal]
  - Acute myeloid leukaemia [Fatal]
  - Angiopathy [Recovered/Resolved]
  - Abdominal pain [Fatal]

NARRATIVE: CASE EVENT DATE: 20170113
